FAERS Safety Report 10755843 (Version 1)
Quarter: 2015Q1

REPORT INFORMATION
  Report Type: Spontaneous
  Country: US (occurrence: US)
  Receive Date: 20150202
  Receipt Date: 20150202
  Transmission Date: 20150721
  Serious: No
  Sender: FDA-Public Use
  Company Number: US-ASTRAZENECA-2015SE09712

PATIENT
  Sex: Female

DRUGS (2)
  1. SYNTHROID [Concomitant]
     Active Substance: LEVOTHYROXINE SODIUM
  2. NEXIUM 24HR [Suspect]
     Active Substance: ESOMEPRAZOLE MAGNESIUM
     Indication: GASTRIC DISORDER
     Route: 048
     Dates: start: 201501

REACTIONS (4)
  - Abdominal pain upper [Unknown]
  - Drug ineffective for unapproved indication [Not Recovered/Not Resolved]
  - Intentional product misuse [Unknown]
  - Gastric disorder [Unknown]

NARRATIVE: CASE EVENT DATE: 201501
